FAERS Safety Report 5208356-7 (Version None)
Quarter: 2007Q1

REPORT INFORMATION
  Report Type: 
  Country: None (occurrence: None)
  Receive Date: 20070110
  Receipt Date: 20070110
  Transmission Date: 20070707
  Serious: Yes (Life-Threatening, Hospitalization, Disabling)
  Sender: FDA-Public Use
  Company Number: None

PATIENT
  Age: 11 Year
  Sex: Female
  Weight: 58.514 kg

DRUGS (2)
  1. ABILIFY [Suspect]
     Indication: BIPOLAR DISORDER
     Dosage: HALF TAB QHS PO
     Route: 048
     Dates: start: 20050304, end: 20061231
  2. ABILIFY [Suspect]
     Indication: OFF LABEL USE
     Dosage: HALF TAB QHS PO
     Route: 048
     Dates: start: 20050304, end: 20061231

REACTIONS (6)
  - BLOOD GLUCOSE INCREASED [None]
  - DEPRESSED LEVEL OF CONSCIOUSNESS [None]
  - DIABETES MELLITUS INSULIN-DEPENDENT [None]
  - DIABETIC KETOACIDOSIS [None]
  - LETHARGY [None]
  - VOMITING [None]
